FAERS Safety Report 8910878 (Version 4)
Quarter: 2013Q2

REPORT INFORMATION
  Report Type: Report from Study
  Country: DE (occurrence: DE)
  Receive Date: 20121116
  Receipt Date: 20130412
  Transmission Date: 20140414
  Serious: Yes (Hospitalization)
  Sender: FDA-Public Use
  Company Number: DE-ABBOTT-12P-062-1008817-00

PATIENT
  Sex: Female
  Weight: 73 kg

DRUGS (5)
  1. HUMIRA [Suspect]
     Indication: RHEUMATOID ARTHRITIS
     Route: 050
     Dates: start: 20100823, end: 201208
  2. CALCIUM VITAMIN D [Concomitant]
     Indication: PRODUCT USED FOR UNKNOWN INDICATION
     Dosage: 1-0-0
  3. SPIRIVA [Concomitant]
     Indication: PRODUCT USED FOR UNKNOWN INDICATION
     Dosage: 1-0-0
  4. BUDESONIDE [Concomitant]
     Indication: PRODUCT USED FOR UNKNOWN INDICATION
     Dosage: 2-0-2
  5. OXIS [Concomitant]
     Indication: PRODUCT USED FOR UNKNOWN INDICATION
     Dosage: 1-0-1

REACTIONS (10)
  - Dermatitis allergic [Recovering/Resolving]
  - Eosinophilia [Recovering/Resolving]
  - Rheumatoid factor increased [Unknown]
  - Urticaria [Recovering/Resolving]
  - Depression [Unknown]
  - Connective tissue disorder [Unknown]
  - Low density lipoprotein increased [Unknown]
  - Lymphadenopathy [Unknown]
  - Diverticulum intestinal [Unknown]
  - Nodule [Unknown]
